FAERS Safety Report 6552896-5 (Version None)
Quarter: 2010Q1

REPORT INFORMATION
  Report Type: 
  Country: None (occurrence: None)
  Receive Date: 20100122
  Receipt Date: 20100113
  Transmission Date: 20100710
  Serious: Yes (Death)
  Sender: FDA-Public Use
  Company Number: 2010BN000007

PATIENT
  Age: 82 Year
  Sex: Male

DRUGS (2)
  1. MELPHALAN HYDROCHLORIDE [Suspect]
     Indication: MULTIPLE MYELOMA
     Dosage: 20 MG;QD;UNK
     Dates: start: 20061201, end: 20070401
  2. PREDNISONE [Concomitant]

REACTIONS (4)
  - ACUTE MYELOID LEUKAEMIA [None]
  - BLOOD PRODUCT TRANSFUSION DEPENDENT [None]
  - MYELODYSPLASTIC SYNDROME [None]
  - TREATMENT FAILURE [None]
